FAERS Safety Report 25197534 (Version 1)
Quarter: 2025Q2

REPORT INFORMATION
  Report Type: Report from Study
  Country: US (occurrence: US)
  Receive Date: 20250415
  Receipt Date: 20250415
  Transmission Date: 20250717
  Serious: Yes (Other)
  Sender: JOHNSON AND JOHNSON
  Company Number: US-JNJFOC-20250410315

PATIENT
  Age: 6 Decade
  Sex: Female

DRUGS (5)
  1. SPRAVATO [Suspect]
     Active Substance: ESKETAMINE
     Indication: Depression
     Route: 045
     Dates: start: 20240726, end: 20241118
  2. SPRAVATO [Suspect]
     Active Substance: ESKETAMINE
     Dosage: ?UNSPECIFIED DOSE, 1 TOTAL DOSES?
     Route: 045
     Dates: start: 20250331, end: 20250401
  3. SPRAVATO [Suspect]
     Active Substance: ESKETAMINE
     Route: 045
     Dates: start: 20250401, end: 20250401
  4. SPRAVATO [Suspect]
     Active Substance: ESKETAMINE
     Route: 045
     Dates: start: 20240724, end: 20240724
  5. SPRAVATO [Suspect]
     Active Substance: ESKETAMINE
     Route: 045
     Dates: start: 20250404, end: 20250407

REACTIONS (1)
  - Neoplasm malignant [Unknown]
